FAERS Safety Report 6099353-0 (Version None)
Quarter: 2009Q1

REPORT INFORMATION
  Report Type: 
  Country: None (occurrence: None)
  Receive Date: 20090303
  Receipt Date: 20090218
  Transmission Date: 20090719
  Serious: Yes (Death, Life-Threatening, Hospitalization)
  Sender: FDA-Public Use
  Company Number: DE-ELI_LILLY_AND_COMPANY-DE200901000697

PATIENT
  Sex: Female

DRUGS (11)
  1. PEMETREXED [Suspect]
     Indication: OVARIAN CANCER
     Dosage: 1080 MG, UNKNOWN
     Route: 042
     Dates: start: 20081117
  2. PEMETREXED [Suspect]
     Dosage: 1050 MG, UNK
     Route: 042
     Dates: start: 20081229
  3. CARBOPLATIN [Suspect]
     Indication: OVARIAN CANCER
     Dosage: 532.5 (NO UNITS)
     Route: 042
     Dates: start: 20081117
  4. CARBOPLATIN [Suspect]
     Dosage: 467.76 MG, UNK
     Route: 042
     Dates: start: 20081229
  5. VITAMIN B-12 [Concomitant]
     Indication: SUPPLEMENTATION THERAPY
     Dosage: UNK, UNKNOWN
     Route: 065
     Dates: start: 20081107, end: 20081107
  6. LAFOL [Concomitant]
     Indication: SUPPLEMENTATION THERAPY
     Dosage: UNK, UNKNOWN
     Route: 065
     Dates: start: 20081107
  7. DEXAMETHASONE [Concomitant]
     Indication: SUPPLEMENTATION THERAPY
     Dosage: UNK, UNKNOWN
     Route: 065
     Dates: start: 20081228, end: 20081230
  8. CIPROFLOXACIN HCL [Concomitant]
     Indication: ANTIBIOTIC THERAPY
     Dosage: 500 (NO UNITS) UNKNOWN
     Route: 065
     Dates: start: 20090106
  9. RAMIPRIL [Concomitant]
     Indication: HYPERTENSION
     Dosage: 2.5 (NO UNITS), UNKNOWN
     Route: 065
     Dates: start: 20080401
  10. PANTOZOL [Concomitant]
     Indication: PROPHYLAXIS
     Dosage: 40 (NO UNITS), UNKNOWN
     Route: 065
     Dates: start: 20081101
  11. FRAXIPARIN [Concomitant]
     Indication: ANTICOAGULANT THERAPY
     Dosage: UNKNOWN
     Route: 065
     Dates: start: 20090106

REACTIONS (8)
  - ANAEMIA [None]
  - BRONCHOPULMONARY ASPERGILLOSIS [None]
  - MULTI-ORGAN FAILURE [None]
  - PANCYTOPENIA [None]
  - RENAL FAILURE [None]
  - SEPSIS [None]
  - URINARY TRACT INFECTION [None]
  - ZYGOMYCOSIS [None]
